FAERS Safety Report 19887596 (Version 1)
Quarter: 2021Q3

REPORT INFORMATION
  Report Type: Spontaneous
  Country: CN (occurrence: CN)
  Receive Date: 20210928
  Receipt Date: 20210928
  Transmission Date: 20211014
  Serious: Yes (Life-Threatening, Hospitalization)
  Sender: FDA-Public Use
  Company Number: CN-NOVOPROD-849467

PATIENT
  Age: 58 Year
  Sex: Male

DRUGS (1)
  1. NOVOLIN R [Suspect]
     Active Substance: INSULIN HUMAN
     Indication: HYPERGLYCAEMIA
     Dosage: 20 IU, BID (HALF AN HOUR BEFORE BREAKFAST,BEFORE SUPPER)
     Route: 058
     Dates: start: 20210717, end: 20210726

REACTIONS (6)
  - Diabetic ketoacidosis [Recovering/Resolving]
  - Chest discomfort [Unknown]
  - Productive cough [Unknown]
  - Chest pain [Unknown]
  - Altered state of consciousness [Unknown]
  - Palpitations [Unknown]

NARRATIVE: CASE EVENT DATE: 20210726
